FAERS Safety Report 10881283 (Version 1)
Quarter: 2015Q1

REPORT INFORMATION
  Report Type: Spontaneous
  Country: US (occurrence: US)
  Receive Date: 20150303
  Receipt Date: 20150303
  Transmission Date: 20150721
  Serious: Yes (Death)
  Sender: FDA-Public Use
  Company Number: US-BANPHARM-20153567

PATIENT
  Age: 43 Year
  Sex: Female

DRUGS (6)
  1. DIPHENHYDRAMINE UNKNOWN PRODUCT [Suspect]
     Active Substance: DIPHENHYDRAMINE
  2. METOPROLOL [Suspect]
     Active Substance: METOPROLOL
  3. OXYCODONE [Suspect]
     Active Substance: OXYCODONE
  4. ETHANOL [Suspect]
     Active Substance: ALCOHOL
  5. CITALOPRAM [Suspect]
     Active Substance: CITALOPRAM HYDROBROMIDE
  6. CHLORDIAZEPOXIDE [Suspect]
     Active Substance: CHLORDIAZEPOXIDE

REACTIONS (2)
  - Drug abuse [Fatal]
  - Exposure via ingestion [None]
